FAERS Safety Report 9456501 (Version 3)
Quarter: 2013Q4

REPORT INFORMATION
  Report Type: Spontaneous
  Country: AU (occurrence: None)
  Receive Date: 20130809
  Receipt Date: 20131015
  Transmission Date: 20140711
  Serious: Yes (Other)
  Sender: FDA-Public Use
  Company Number: ADR-2013-01339

PATIENT
  Sex: Female

DRUGS (2)
  1. LIORESAL INTRATHECAL [Suspect]
     Dosage: DAY
  2. MORPHINE [Suspect]

REACTIONS (4)
  - Device dislocation [None]
  - Device dislocation [None]
  - Respiratory disorder [None]
  - Injury [None]
